FAERS Safety Report 4811601-0 (Version None)
Quarter: 2005Q4

REPORT INFORMATION
  Report Type: 
  Country: None (occurrence: None)
  Receive Date: 20051027
  Receipt Date: 20050722
  Transmission Date: 20060501
  Serious: Yes (Hospitalization, Disabling)
  Sender: FDA-Public Use
  Company Number: US-MERCK-0507USA03872

PATIENT
  Age: 37 Year
  Sex: Female
  Weight: 97 kg

DRUGS (16)
  1. VIOXX [Suspect]
     Indication: BACK PAIN
     Route: 048
     Dates: start: 20020101, end: 20040901
  2. ALLEGRA [Concomitant]
     Route: 065
  3. WELLBUTRIN SR [Concomitant]
     Indication: DEPRESSION
     Route: 065
  4. CELEXA [Concomitant]
     Indication: DEPRESSION
     Route: 065
  5. TRAZODONE HYDROCHLORIDE [Concomitant]
     Indication: SLEEP DISORDER
     Route: 065
  6. ROBAXIN [Concomitant]
     Route: 065
  7. FLEXERIL [Concomitant]
     Route: 065
  8. CLONIDINE [Concomitant]
     Indication: BLOOD PRESSURE INCREASED
     Route: 065
     Dates: start: 20021231, end: 20030106
  9. TYLENOL W/ CODEINE NO. 3 [Concomitant]
     Indication: BACK PAIN
     Route: 065
  10. TYLENOL W/ CODEINE NO. 3 [Concomitant]
     Indication: HEADACHE
     Route: 065
  11. ORTHO-CEPT [Concomitant]
     Indication: CONTRACEPTION
     Route: 065
  12. NAPROSYN [Concomitant]
     Indication: BACK PAIN
     Route: 065
     Dates: start: 19910101
  13. NAPROSYN [Concomitant]
     Indication: HEADACHE
     Route: 065
     Dates: start: 19910101
  14. TYLENOL (CAPLET) [Concomitant]
     Indication: BACK PAIN
     Route: 065
     Dates: start: 19910101
  15. TYLENOL (CAPLET) [Concomitant]
     Indication: HEADACHE
     Route: 065
     Dates: start: 19910101
  16. ACETAMINOPHEN [Concomitant]
     Route: 065
     Dates: start: 19910101

REACTIONS (8)
  - ANEURYSM [None]
  - BLOOD TRIGLYCERIDES INCREASED [None]
  - DIABETES MELLITUS [None]
  - GASTROOESOPHAGEAL REFLUX DISEASE [None]
  - HYPERTENSION [None]
  - ISCHAEMIC STROKE [None]
  - SLEEP APNOEA SYNDROME [None]
  - SLEEP DISORDER [None]
